FAERS Safety Report 4790331-8 (Version None)
Quarter: 2005Q4

REPORT INFORMATION
  Report Type: 
  Country: None (occurrence: None)
  Receive Date: 20051005
  Receipt Date: 20051005
  Transmission Date: 20060501
  Serious: Yes (Life-Threatening, Hospitalization)
  Sender: FDA-Public Use
  Company Number: None

PATIENT
  Age: 20 Year
  Sex: Female

DRUGS (7)
  1. INTERFERON ALFA [Suspect]
     Indication: HEPATITIS C
     Dates: start: 20030801
  2. RIBAVIRIN [Concomitant]
  3. FUROSEMIDE [Concomitant]
  4. HEPARIN [Concomitant]
  5. LISINOPRIL [Concomitant]
  6. TEMAZEPAM [Concomitant]
  7. POTASSIUM CHLORIDE [Concomitant]

REACTIONS (9)
  - BRONCHITIS [None]
  - CHEST PAIN [None]
  - COUGH [None]
  - EJECTION FRACTION DECREASED [None]
  - INTRACARDIAC THROMBUS [None]
  - MITRAL VALVE INCOMPETENCE [None]
  - ORTHOPNOEA [None]
  - PERICARDIAL EFFUSION [None]
  - PNEUMONIA PRIMARY ATYPICAL [None]
